FAERS Safety Report 5315421-2 (Version None)
Quarter: 2007Q2

REPORT INFORMATION
  Report Type: 
  Country: None (occurrence: None)
  Receive Date: 20070503
  Receipt Date: 20070426
  Transmission Date: 20071010
  Serious: Yes (Other)
  Sender: FDA-Public Use
  Company Number: PHEH2007US04716

PATIENT
  Age: 49 Year
  Sex: Female

DRUGS (3)
  1. ZELNORM [Suspect]
     Indication: IRRITABLE BOWEL SYNDROME
     Dosage: 6 MG, BID
     Route: 048
     Dates: start: 20051018, end: 20060217
  2. ACIPEM [Concomitant]
     Dosage: 20 MG, QD
     Route: 048
     Dates: start: 20050722, end: 20051007
  3. ZEGERID [Concomitant]
     Indication: GASTROOESOPHAGEAL REFLUX DISEASE
     Route: 048
     Dates: start: 20051007, end: 20051201

REACTIONS (5)
  - DIZZINESS [None]
  - HYPERTENSION [None]
  - MUSCLE SPASMS [None]
  - OSTEOARTHRITIS [None]
  - X-RAY ABNORMAL [None]
